FAERS Safety Report 11427445 (Version 3)
Quarter: 2016Q3

REPORT INFORMATION
  Report Type: Spontaneous
  Country: US (occurrence: US)
  Receive Date: 20150827
  Receipt Date: 20160928
  Transmission Date: 20161109
  Serious: Yes (Hospitalization)
  Sender: FDA-Public Use
  Company Number: US-SA-2015SA005802

PATIENT
  Age: 54 Year
  Sex: Female
  Weight: 128 kg

DRUGS (4)
  1. LMX 5 [Concomitant]
     Indication: PREMEDICATION
     Dosage: 4% CREAM 15 GM TO VENOUS SITE 30-40 MINUTES PRIOR TO INFUSION
  2. FABRAZYME [Suspect]
     Active Substance: AGALSIDASE BETA
     Indication: LIPIDOSIS
     Route: 042
     Dates: start: 20140124
  3. BENADRYL [Concomitant]
     Active Substance: DIPHENHYDRAMINE HYDROCHLORIDE
     Indication: PREMEDICATION
     Dosage: 30 MINUTES PRIOR TO INFUSION DOSE:150 MILLIGRAM(S)/MILLILITRE
     Route: 042
  4. FABRAZYME [Suspect]
     Active Substance: AGALSIDASE BETA
     Indication: FABRY^S DISEASE
     Route: 042
     Dates: start: 20140124

REACTIONS (6)
  - Chest pain [Unknown]
  - Hypoaesthesia oral [Not Recovered/Not Resolved]
  - Cardiac disorder [Unknown]
  - Neck pain [Unknown]
  - Tongue injury [Recovered/Resolved]
  - Hypoaesthesia [Unknown]

NARRATIVE: CASE EVENT DATE: 20150109
